FAERS Safety Report 9125863 (Version 2)
Quarter: 2013Q1

REPORT INFORMATION
  Report Type: Spontaneous
  Country: JP (occurrence: JP)
  Receive Date: 20130228
  Receipt Date: 20130308
  Transmission Date: 20140127
  Serious: Yes (Death)
  Sender: FDA-Public Use
  Company Number: PHHY2013JP019425

PATIENT
  Age: 60 Year
  Sex: Male

DRUGS (4)
  1. APRESOLINE [Suspect]
     Indication: MALIGNANT HYPERTENSION
     Route: 048
     Dates: start: 1976
  2. PROPRANOLOL HYDROCHLORIDE [Concomitant]
     Indication: MALIGNANT HYPERTENSION
     Dosage: 450 MG, UNK
  3. FUROSEMIDE [Concomitant]
     Indication: MALIGNANT HYPERTENSION
  4. METHYLDOPA [Concomitant]
     Indication: MALIGNANT HYPERTENSION

REACTIONS (4)
  - Renal failure [Fatal]
  - Renal artery stenosis [Fatal]
  - Renal artery thrombosis [Fatal]
  - Cerebellar haemorrhage [Fatal]
